FAERS Safety Report 16343174 (Version 1)
Quarter: 2019Q3

REPORT INFORMATION
  Report Type: Spontaneous
  Country: US (occurrence: US)
  Receive Date: 20190521
  Receipt Date: 20190521
  Transmission Date: 20191004
  Serious: Yes (Disabling, Other)
  Sender: FDA-Public Use
  Company Number: None

PATIENT
  Age: 66 Year
  Sex: Female
  Weight: 63.9 kg

DRUGS (3)
  1. BYSTOLIC [Concomitant]
     Active Substance: NEBIVOLOL HYDROCHLORIDE
  2. MYOVIEW [Suspect]
     Active Substance: TECHNETIUM TC-99M TETROFOSMIN
     Indication: NUCLEAR MAGNETIC RESONANCE IMAGING
     Dosage: ?          OTHER FREQUENCY:1X;?
     Route: 042
     Dates: start: 20190408, end: 20190408
  3. MYOVIEW [Suspect]
     Active Substance: TECHNETIUM TC-99M TETROFOSMIN
     Indication: SCAN WITH CONTRAST
     Dosage: ?          OTHER FREQUENCY:1X;?
     Route: 042
     Dates: start: 20190408, end: 20190408

REACTIONS (18)
  - Hypertension [None]
  - Paraesthesia [None]
  - Adverse reaction [None]
  - Fatigue [None]
  - Dysphonia [None]
  - Toxicity to various agents [None]
  - Asthenia [None]
  - Feeling hot [None]
  - Loss of personal independence in daily activities [None]
  - Pain [None]
  - Muscle twitching [None]
  - Contraindicated product administered [None]
  - Peripheral coldness [None]
  - Dyspnoea [None]
  - Tinnitus [None]
  - Cognitive disorder [None]
  - Gait disturbance [None]
  - Insomnia [None]

NARRATIVE: CASE EVENT DATE: 20190408
